FAERS Safety Report 5262659-9 (Version None)
Quarter: 2007Q1

REPORT INFORMATION
  Report Type: 
  Country: None (occurrence: None)
  Receive Date: 20061219
  Receipt Date: 20060303
  Transmission Date: 20070707
  Serious: Yes (Disabling)
  Sender: FDA-Public Use
  Company Number: 2006032549

PATIENT
  Sex: Male

DRUGS (8)
  1. ZYRTEC-D 12 HOUR [Suspect]
     Indication: ILL-DEFINED DISORDER
  2. THEOPHYLLINE [Concomitant]
  3. SINGULAIR [Concomitant]
  4. ALBUTEROL [Concomitant]
  5. ZANAFLEX [Concomitant]
  6. HYZAAR [Concomitant]
  7. HYDROCODONE (HYDROCODONE) [Concomitant]
  8. APAP (PARACETAMOL) [Concomitant]

REACTIONS (1)
  - ARTHRITIS [None]
